FAERS Safety Report 4612686-7 (Version None)
Quarter: 2005Q1

REPORT INFORMATION
  Report Type: 
  Country: None (occurrence: None)
  Receive Date: 20050318
  Receipt Date: 20050311
  Transmission Date: 20050727
  Serious: Yes (Hospitalization)
  Sender: FDA-Public Use
  Company Number: PHEH2005US03095

PATIENT
  Age: 68 Year
  Sex: Female
  Weight: 113 kg

DRUGS (4)
  1. VERALIN [Concomitant]
  2. TOPROL-XL [Concomitant]
  3. ALLOPURINOL [Concomitant]
  4. DIOVAN HCT [Suspect]
     Indication: HYPERTENSION
     Dosage: ONE TABLET, QD
     Route: 048
     Dates: start: 20000419, end: 20050224

REACTIONS (3)
  - COUGH [None]
  - DIARRHOEA [None]
  - PYREXIA [None]
